FAERS Safety Report 9319529 (Version 5)
Quarter: 2013Q4

REPORT INFORMATION
  Report Type: Spontaneous
  Country: US (occurrence: US)
  Receive Date: 20130530
  Receipt Date: 20131219
  Transmission Date: 20140711
  Serious: Yes (Other)
  Sender: FDA-Public Use
  Company Number: US-GLAXOSMITHKLINE-A0997347A

PATIENT
  Age: 51 Year
  Sex: Male
  Weight: 102 kg

DRUGS (1)
  1. FLOLAN [Suspect]
     Indication: COR PULMONALE CHRONIC
     Dosage: 6NGKM CONTINUOUS
     Route: 042
     Dates: start: 20120831

REACTIONS (11)
  - Dysentery [Unknown]
  - Nausea [Recovering/Resolving]
  - Diarrhoea [Not Recovered/Not Resolved]
  - Flushing [Unknown]
  - Headache [Unknown]
  - Device connection issue [Unknown]
  - Urticaria [Unknown]
  - Eye swelling [Recovering/Resolving]
  - Rash macular [Recovering/Resolving]
  - Fatigue [Recovering/Resolving]
  - Pain in jaw [Unknown]
